FAERS Safety Report 5110373-2 (Version None)
Quarter: 2006Q3

REPORT INFORMATION
  Report Type: 
  Country: None (occurrence: None)
  Receive Date: 20060921
  Receipt Date: 20060912
  Transmission Date: 20061208
  Serious: Yes (Life-Threatening, Hospitalization)
  Sender: FDA-Public Use
  Company Number: GB-SANOFI-SYNTHELABO-A01200607549

PATIENT
  Age: 66 Year
  Sex: Male
  Weight: 88 kg

DRUGS (4)
  1. GRANISETRON [Concomitant]
     Indication: VOMITING
     Route: 042
     Dates: start: 20060725
  2. ATENOLOL [Concomitant]
     Indication: HYPERTENSION
     Route: 048
  3. OXALIPLATIN [Suspect]
     Indication: GASTROINTESTINAL CARCINOMA
     Route: 042
     Dates: start: 20060725, end: 20060725
  4. INSULIN [Concomitant]
     Dosage: UNK
     Route: 065

REACTIONS (6)
  - ARRHYTHMIA [None]
  - FEELING HOT [None]
  - LOSS OF CONSCIOUSNESS [None]
  - OXYGEN SATURATION DECREASED [None]
  - POLYURIA [None]
  - TRISMUS [None]
